FAERS Safety Report 8079793-0 (Version None)
Quarter: 2012Q1

REPORT INFORMATION
  Report Type: 
  Country: None (occurrence: None)
  Receive Date: 20120128
  Receipt Date: 20110801
  Transmission Date: 20120608
  Serious: No
  Sender: FDA-Public Use
  Company Number: US-ABBOTT-11P-163-0843010-00

PATIENT
  Sex: Female

DRUGS (4)
  1. MELOXICAM [Concomitant]
     Indication: ARTHRALGIA
  2. HUMIRA [Suspect]
     Indication: RHEUMATOID ARTHRITIS
     Route: 058
     Dates: start: 20090101
  3. CYMBALTA [Concomitant]
     Indication: DEPRESSION
  4. PLAQUENIL [Concomitant]
     Indication: RHEUMATOID ARTHRITIS

REACTIONS (1)
  - PRURITUS GENERALISED [None]
